FAERS Safety Report 4845483-8 (Version None)
Quarter: 2005Q4

REPORT INFORMATION
  Report Type: 
  Country: None (occurrence: None)
  Receive Date: 20051205
  Receipt Date: 20050819
  Transmission Date: 20060501
  Serious: Yes (Other)
  Sender: FDA-Public Use
  Company Number: PHHO2005BR13177

PATIENT
  Age: 40 Year
  Sex: Male
  Weight: 86 kg

DRUGS (4)
  1. DIOVAN [Suspect]
     Indication: HYPERTENSION
     Dosage: 80 MG, QD
     Route: 048
     Dates: start: 20050301, end: 20050814
  2. DIOVAN HCT [Suspect]
     Indication: HYPERTENSION
     Dosage: 160/12.5 MG/QD
     Route: 048
     Dates: start: 20050815
  3. DIOVAN HCT [Suspect]
     Dosage: 160/12.5 MG
     Route: 048
  4. MULTI-VITAMINS [Concomitant]

REACTIONS (12)
  - BLOOD PRESSURE FLUCTUATION [None]
  - CHILLS [None]
  - HEADACHE [None]
  - HEART RATE INCREASED [None]
  - HYPERHIDROSIS [None]
  - HYPOTENSION [None]
  - MICTURITION URGENCY [None]
  - POLLAKIURIA [None]
  - RENAL PAIN [None]
  - SOMNOLENCE [None]
  - URINARY TRACT DISORDER [None]
  - VISUAL DISTURBANCE [None]
